FAERS Safety Report 5815134-4 (Version None)
Quarter: 2008Q3

REPORT INFORMATION
  Report Type: 
  Country: None (occurrence: None)
  Receive Date: 20080718
  Receipt Date: 20080716
  Transmission Date: 20090109
  Serious: Yes (Other)
  Sender: FDA-Public Use
  Company Number: GB-BRISTOL-MYERS SQUIBB COMPANY-14265839

PATIENT
  Age: 74 Year
  Sex: Male

DRUGS (1)
  1. HYDROXYUREA [Suspect]
     Dosage: THERAPY DATES: 14-SEP-2004 TO 23-DEC-2004  13-APR-2005 TO 15-SEP-2005
     Dates: start: 20040914

REACTIONS (3)
  - ABDOMINAL ABSCESS [None]
  - DEPRESSION [None]
  - DYSGEUSIA [None]
